FAERS Safety Report 4474307-6 (Version None)
Quarter: 2004Q4

REPORT INFORMATION
  Report Type: 
  Country: None (occurrence: None)
  Receive Date: 20041012
  Receipt Date: 20041012
  Transmission Date: 20050328
  Serious: Yes (Hospitalization)
  Sender: FDA-Public Use
  Company Number: None

PATIENT
  Age: 59 Year
  Sex: Male
  Weight: 83.9154 kg

DRUGS (10)
  1. VIOXX [Suspect]
     Indication: ARTHRITIS
     Dosage: 25 MG DAILY BY MOUTH
     Route: 048
     Dates: start: 20011231, end: 20040930
  2. FOLIC ACID [Concomitant]
  3. MEVACOR [Concomitant]
  4. TRENTAL [Concomitant]
  5. IMDUR [Concomitant]
  6. TOPROL-XL [Concomitant]
  7. VIT B6 [Concomitant]
  8. FISH OIL [Concomitant]
  9. VIT C [Concomitant]
  10. VIT E [Concomitant]

REACTIONS (3)
  - ANGINA PECTORIS [None]
  - CHEST PAIN [None]
  - CORONARY ARTERY OCCLUSION [None]
